FAERS Safety Report 8095994 (Version 4)
Quarter: 2013Q2

REPORT INFORMATION
  Report Type: Spontaneous
  Country: US (occurrence: US)
  Receive Date: 20110818
  Receipt Date: 20130604
  Transmission Date: 20140414
  Serious: Yes (Other)
  Sender: FDA-Public Use
  Company Number: US-ROCHE-797295

PATIENT
  Age: 20 Year
  Sex: Male
  Weight: 77.18 kg

DRUGS (2)
  1. ACCUTANE [Suspect]
     Indication: ACNE
     Route: 065
     Dates: start: 1992, end: 1994
  2. ACCUTANE [Suspect]
     Route: 065

REACTIONS (9)
  - Colitis ulcerative [Unknown]
  - Inflammatory bowel disease [Unknown]
  - Depression [Unknown]
  - Injury [Unknown]
  - Crohn^s disease [Unknown]
  - Perirectal abscess [Unknown]
  - Anal fissure [Unknown]
  - Anal fistula [Unknown]
  - Epistaxis [Unknown]
